FAERS Safety Report 17026545 (Version 1)
Quarter: 2019Q4

REPORT INFORMATION
  Report Type: Spontaneous
  Country: CA (occurrence: CA)
  Receive Date: 20191113
  Receipt Date: 20191113
  Transmission Date: 20200122
  Serious: Yes (Life-Threatening)
  Sender: FDA-Public Use
  Company Number: CA-PFIZER INC-2019487829

PATIENT
  Age: 72 Year
  Sex: Female

DRUGS (5)
  1. IRINOTECAN HCL [Suspect]
     Active Substance: IRINOTECAN HYDROCHLORIDE
     Dosage: 200 MG/M2, EVERY 3 WEEKS
     Route: 042
  2. XELODA [Suspect]
     Active Substance: CAPECITABINE
     Dosage: 500 MG, CYCLIC
     Route: 048
  3. IRINOTECAN HCL [Suspect]
     Active Substance: IRINOTECAN HYDROCHLORIDE
     Dosage: 200 MG/M2, EVERY 3 WEEKS
     Route: 042
  4. AVASTIN [Suspect]
     Active Substance: BEVACIZUMAB
     Indication: COLORECTAL CANCER METASTATIC
     Dosage: 7.5 MG/KG, EVERY 3 WEEKS
     Route: 042
  5. XELODA [Suspect]
     Active Substance: CAPECITABINE
     Dosage: UNK
     Route: 048

REACTIONS (1)
  - Angina unstable [Recovered/Resolved]
